FAERS Safety Report 13296501 (Version 2)
Quarter: 2017Q2

REPORT INFORMATION
  Report Type: Spontaneous
  Country: US (occurrence: US)
  Receive Date: 20170305
  Receipt Date: 20170403
  Transmission Date: 20170830
  Serious: Yes (Disabling)
  Sender: FDA-Public Use
  Company Number: US-SHIRE-US201703454

PATIENT
  Age: 65 Year
  Sex: Female

DRUGS (1)
  1. XIIDRA [Suspect]
     Active Substance: LIFITEGRAST
     Indication: DRY EYE
     Dosage: UNK, UNKNOWN
     Route: 047
     Dates: start: 20161109, end: 20161216

REACTIONS (6)
  - Inflammation [Not Recovered/Not Resolved]
  - Visual acuity reduced [Recovered/Resolved]
  - Ocular hyperaemia [Unknown]
  - Vision blurred [Unknown]
  - Instillation site irritation [Not Recovered/Not Resolved]
  - Condition aggravated [Not Recovered/Not Resolved]

NARRATIVE: CASE EVENT DATE: 20161109
